FAERS Safety Report 12622177 (Version 1)
Quarter: 2016Q3

REPORT INFORMATION
  Report Type: Spontaneous
  Country: US (occurrence: US)
  Receive Date: 20160804
  Receipt Date: 20160804
  Transmission Date: 20161109
  Serious: No
  Sender: FDA-Public Use
  Company Number: US-009507513-1608USA001543

PATIENT
  Age: 23 Year
  Sex: Female
  Weight: 50.34 kg

DRUGS (1)
  1. NUVARING [Suspect]
     Active Substance: ETHINYL ESTRADIOL\ETONOGESTREL
     Indication: CONTRACEPTION
     Dosage: UNK
     Route: 067
     Dates: start: 20160801, end: 20160802

REACTIONS (3)
  - Vomiting [Unknown]
  - Nausea [Unknown]
  - Mood altered [Unknown]

NARRATIVE: CASE EVENT DATE: 20160801
